FAERS Safety Report 24449698 (Version 1)
Quarter: 2024Q4

REPORT INFORMATION
  Report Type: Spontaneous
  Country: US (occurrence: None)
  Receive Date: 20241016
  Receipt Date: 20241016
  Transmission Date: 20250115
  Serious: Yes (Hospitalization)
  Sender: Public
  Company Number: None

PATIENT
  Age: 69 Year
  Sex: Male
  Weight: 72 kg

DRUGS (1)
  1. APIXABAN [Suspect]
     Active Substance: APIXABAN
     Indication: Atrial fibrillation
     Dosage: FREQUENCY : TWICE A DAY;?
     Route: 048
     Dates: start: 20240406, end: 20240711

REACTIONS (5)
  - Melaena [None]
  - Asthenia [None]
  - Haemoglobin decreased [None]
  - Lung neoplasm malignant [None]
  - Bronchial carcinoma [None]

NARRATIVE: CASE EVENT DATE: 20240711
